FAERS Safety Report 5193103-8 (Version None)
Quarter: 2006Q4

REPORT INFORMATION
  Report Type: 
  Country: None (occurrence: None)
  Receive Date: 20061228
  Receipt Date: 20060427
  Transmission Date: 20070319
  Serious: No
  Sender: FDA-Public Use
  Company Number: US-GLAXOSMITHKLINE-A0603553A

PATIENT
  Age: 77 Year
  Sex: Male

DRUGS (7)
  1. AVODART [Suspect]
     Indication: BENIGN PROSTATIC HYPERPLASIA
     Dosage: .5MG PER DAY
     Route: 048
     Dates: start: 20060101
  2. GLUCOPHAGE [Concomitant]
  3. PRINIVIL [Concomitant]
  4. NEXIUM [Concomitant]
  5. NORVASC [Concomitant]
  6. ASPIRIN [Concomitant]
  7. MOBIC [Concomitant]

REACTIONS (5)
  - DIARRHOEA [None]
  - EJACULATION DISORDER [None]
  - ERECTILE DYSFUNCTION [None]
  - LIBIDO DECREASED [None]
  - NIPPLE PAIN [None]
